FAERS Safety Report 6188278-8 (Version None)
Quarter: 2009Q2

REPORT INFORMATION
  Report Type: 
  Country: None (occurrence: None)
  Receive Date: 20090513
  Receipt Date: 20090506
  Transmission Date: 20091009
  Serious: Yes (Death, Other)
  Sender: FDA-Public Use
  Company Number: US-BAXTER-2009BH006541

PATIENT
  Age: 67 Year
  Sex: Female

DRUGS (1)
  1. HEPARIN SODIUM INJECTION [Suspect]
     Indication: THROMBOSIS PROPHYLAXIS
     Route: 058
     Dates: start: 20071221, end: 20080113

REACTIONS (11)
  - DIARRHOEA [None]
  - DYSPNOEA [None]
  - HEPATIC CIRRHOSIS [None]
  - HYPOTENSION [None]
  - MENTAL STATUS CHANGES [None]
  - NAUSEA [None]
  - OEDEMA [None]
  - RENAL FAILURE [None]
  - SEPTIC SHOCK [None]
  - TACHYCARDIA [None]
  - UNRESPONSIVE TO STIMULI [None]
